FAERS Safety Report 22209050 (Version 1)
Quarter: 2023Q2

REPORT INFORMATION
  Report Type: Report from Study
  Country: DK (occurrence: DK)
  Receive Date: 20230413
  Receipt Date: 20230413
  Transmission Date: 20230722
  Serious: Yes (Other)
  Sender: FDA-Public Use
  Company Number: DK-MYLANLABS-2023M1038186

PATIENT
  Age: 76 Year
  Sex: Female

DRUGS (9)
  1. LAMOTRIGINE [Suspect]
     Active Substance: LAMOTRIGINE
     Indication: Trigeminal neuralgia
     Dosage: 300 MILLIGRAM (MEDICATION 90 DAYS POST LOADING)
     Route: 065
  2. GABAPENTIN [Suspect]
     Active Substance: GABAPENTIN
     Indication: Prophylaxis
     Dosage: 600 MILLIGRAM (MEDICATION BEFORE LOADING)
     Route: 048
  3. GABAPENTIN [Suspect]
     Active Substance: GABAPENTIN
     Indication: Prophylaxis
     Dosage: 2700 MILLIGRAM (MEDICATION 90 DAYS POST LOADING)
     Route: 065
  4. PHENYTOIN [Suspect]
     Active Substance: PHENYTOIN
     Indication: Trigeminal neuralgia
     Dosage: 150 MILLIGRAM (MEDICATION 90 DAYS POST LOADING)
     Route: 065
  5. PREGABALIN [Suspect]
     Active Substance: PREGABALIN
     Indication: Prophylaxis
     Dosage: 450 MILLIGRAM (MEDICATION BEFORE LOADING)
     Route: 048
  6. AMITRIPTYLINE [Suspect]
     Active Substance: AMITRIPTYLINE
     Indication: Prophylaxis
     Dosage: 20 MILLIGRAM (MEDICATION BEFORE LOADING)
     Route: 048
  7. AMITRIPTYLINE [Suspect]
     Active Substance: AMITRIPTYLINE
     Indication: Prophylaxis
     Dosage: 20 MILLIGRAM (MEDICATION 90 DAYS POST LOADING)
     Route: 065
  8. FOSPHENYTOIN SODIUM [Concomitant]
     Active Substance: FOSPHENYTOIN SODIUM
     Indication: Trigeminal neuralgia
     Dosage: 20MG PER KILO BODY WEIGHT DILUTED IN ISOTONIC SALINE 0.9% CONTAINING A TOTAL VOLUME OF 140ML...
     Route: 042
  9. SODIUM CHLORIDE [Concomitant]
     Active Substance: SODIUM CHLORIDE
     Indication: Vehicle solution use
     Dosage: 20MG PER KILO BODY WEIGHT OF FOSPHENYTOIN DILUTED IN ISOTONIC SALINE 0.9% ...
     Route: 042

REACTIONS (1)
  - Drug ineffective [Unknown]
